FAERS Safety Report 20237161 (Version 2)
Quarter: 2022Q1

REPORT INFORMATION
  Report Type: Spontaneous
  Country: BE (occurrence: BE)
  Receive Date: 20211228
  Receipt Date: 20220111
  Transmission Date: 20220423
  Serious: Yes (Life-Threatening, Hospitalization, Other)
  Sender: FDA-Public Use
  Company Number: None

PATIENT
  Age: 49 Year
  Sex: Male

DRUGS (16)
  1. LAMIVUDINE [Suspect]
     Active Substance: LAMIVUDINE
     Indication: Hepatitis B reactivation
     Dosage: UNK
     Route: 065
  2. PROCARBAZINE [Suspect]
     Active Substance: PROCARBAZINE
     Indication: Hodgkin^s disease
     Dosage: UNK (FOUR CYCLES OF ESCALATED BEACOPP REGIMEN)
     Route: 065
     Dates: start: 200602, end: 200604
  3. PROCARBAZINE [Suspect]
     Active Substance: PROCARBAZINE
     Indication: Hodgkin^s disease nodular sclerosis stage IV
     Dosage: UNK (BASELINE BEACOPP PATTERN)
     Route: 065
     Dates: start: 2006
  4. PREDNISONE [Suspect]
     Active Substance: PREDNISONE
     Indication: Hodgkin^s disease
     Dosage: UNK (FOUR CYCLES OF ESCALATED BEACOPP REGIMEN)
     Route: 065
     Dates: start: 200602, end: 200604
  5. PREDNISONE [Suspect]
     Active Substance: PREDNISONE
     Indication: Hodgkin^s disease nodular sclerosis stage IV
     Dosage: UNK (BASELINE BEACOPP PATTERN)
     Route: 065
     Dates: start: 2006
  6. CYCLOPHOSPHAMIDE [Suspect]
     Active Substance: CYCLOPHOSPHAMIDE
     Indication: Hodgkin^s disease nodular sclerosis stage IV
     Dosage: UNK (BASELINE BEACOPP PATTERN)
     Route: 065
     Dates: start: 2006
  7. CYCLOPHOSPHAMIDE [Suspect]
     Active Substance: CYCLOPHOSPHAMIDE
     Indication: Hodgkin^s disease
     Dosage: UNK (FOUR CYCLES OF ESCALATED BEACOPP REGIMEN)
     Route: 065
     Dates: start: 200602, end: 200604
  8. ONCOVIN [Suspect]
     Active Substance: VINCRISTINE SULFATE
     Indication: Hodgkin^s disease
     Dosage: UNK (FOUR CYCLES OF ESCALATED BEACOPP REGIMEN)
     Route: 065
     Dates: start: 200602, end: 200604
  9. ETOPOSIDE [Suspect]
     Active Substance: ETOPOSIDE
     Indication: Hodgkin^s disease
     Dosage: UNK (FOUR CYCLES OF ESCALATED BEACOPP REGIMEN)
     Route: 065
     Dates: start: 200602, end: 200604
  10. ETOPOSIDE [Suspect]
     Active Substance: ETOPOSIDE
     Indication: Hodgkin^s disease nodular sclerosis stage IV
     Dosage: UNK (BASELINE BEACOPP PATTERN)
     Route: 065
  11. ADRIAMYCIN [Suspect]
     Active Substance: DOXORUBICIN HYDROCHLORIDE
     Indication: Hodgkin^s disease
     Dosage: UNK (FOUR CYCLES OF ESCALATED BEACOPP REGIMEN)
     Route: 065
     Dates: start: 200602, end: 200604
  12. ADRIAMYCIN [Suspect]
     Active Substance: DOXORUBICIN HYDROCHLORIDE
     Indication: Hodgkin^s disease nodular sclerosis stage IV
     Dosage: UNK (BASELINE BEACOPP PATTERN)
     Route: 065
     Dates: start: 2006
  13. BLEOMYCIN [Suspect]
     Active Substance: BLEOMYCIN SULFATE
     Indication: Hodgkin^s disease
     Dosage: FOUR CYCLES OF ESCALATED BEACOPP REGIMEN
     Route: 065
     Dates: start: 200602, end: 200604
  14. BLEOMYCIN [Suspect]
     Active Substance: BLEOMYCIN SULFATE
     Indication: Hodgkin^s disease nodular sclerosis stage IV
     Dosage: UNK (BASELINE BEACOPP PATTERN)
     Route: 065
     Dates: start: 2006
  15. VINCRISTINE SULFATE [Suspect]
     Active Substance: VINCRISTINE SULFATE
     Indication: Hodgkin^s disease nodular sclerosis stage IV
     Dosage: UNK (FOUR CYCLES OF ESCALATED BEACOPP REGIMEN)
     Route: 065
     Dates: start: 200602, end: 200604
  16. VINCRISTINE SULFATE [Suspect]
     Active Substance: VINCRISTINE SULFATE
     Dosage: UNK (BASELINE BEACOPP PATTERN)
     Route: 065
     Dates: start: 2006

REACTIONS (8)
  - Hepatic encephalopathy [Recovered/Resolved]
  - Hepatitis B reactivation [Recovered/Resolved]
  - Hepatic failure [Recovered/Resolved]
  - Drug ineffective [Unknown]
  - Fatigue [Recovered/Resolved]
  - Jaundice [Recovered/Resolved]
  - Generalised oedema [Recovered/Resolved]
  - Decreased appetite [Recovered/Resolved]

NARRATIVE: CASE EVENT DATE: 20060101
